FAERS Safety Report 10189576 (Version 3)
Quarter: 2014Q2

REPORT INFORMATION
  Report Type: Spontaneous
  Country: US (occurrence: US)
  Receive Date: 20140522
  Receipt Date: 20140523
  Transmission Date: 20141212
  Serious: No
  Sender: FDA-Public Use
  Company Number: US-ASTRAZENECA-2013SE74032

PATIENT
  Age: 62 Year
  Sex: Female
  Weight: 86.6 kg

DRUGS (18)
  1. PULMICORT FLEXHALER [Suspect]
     Dosage: 1 PUFF, TWO TIMES A DAY
     Route: 055
     Dates: start: 20131002
  2. HYDROCHLOROTHIAZIDE [Suspect]
     Indication: HYPERTENSION
     Route: 048
  3. MECLIZINE [Suspect]
     Indication: SLEEP DISORDER
     Dosage: 1 BID
     Route: 048
  4. MECLIZINE [Suspect]
     Indication: DIZZINESS
     Dosage: 1 BID
     Route: 048
  5. MECLIZINE [Suspect]
     Indication: SLEEP DISORDER
     Dosage: HALF TABLET TWO TIMES A DAY
     Route: 048
  6. MECLIZINE [Suspect]
     Indication: DIZZINESS
     Dosage: HALF TABLET TWO TIMES A DAY
     Route: 048
  7. LOSARTAN [Concomitant]
     Indication: HYPERTENSION
     Route: 048
  8. FUROSEMIDE [Concomitant]
     Indication: SWELLING
  9. MONTELUKAST [Concomitant]
     Indication: VOCAL CORD DISORDER
     Route: 048
     Dates: start: 201308
  10. VITAMIN D [Concomitant]
     Indication: MULTIPLE ALLERGIES
     Dosage: 5000 (2) WEEK
  11. DIVALPROEX [Concomitant]
     Indication: HEADACHE
  12. ASPIRIN [Concomitant]
     Indication: CEREBROVASCULAR ACCIDENT
     Route: 048
     Dates: start: 20120308
  13. METFORMIN [Concomitant]
     Indication: BLOOD GLUCOSE ABNORMAL
     Route: 048
     Dates: start: 1997
  14. ALLEGRA [Concomitant]
     Indication: SINUS DISORDER
     Dates: start: 20130902
  15. ALLEGRA [Concomitant]
     Indication: MULTIPLE ALLERGIES
     Dates: start: 20130902
  16. PROVENTIL [Concomitant]
     Indication: SINUS DISORDER
     Dosage: 2 PUFFS TID
     Dates: start: 20131002
  17. PROVENTIL [Concomitant]
     Indication: MULTIPLE ALLERGIES
     Dosage: 2 PUFFS TID
     Dates: start: 20131002
  18. MIN-PLEX B SUPPLEMENT [Concomitant]
     Indication: BLOOD GLUCOSE ABNORMAL
     Dosage: 3 DAILY
     Route: 048
     Dates: start: 2012

REACTIONS (7)
  - Blood pressure inadequately controlled [Unknown]
  - Dizziness [Unknown]
  - Dyspnoea [Unknown]
  - Ear discomfort [Unknown]
  - Feeling drunk [Unknown]
  - Malaise [Unknown]
  - Off label use [Unknown]
